FAERS Safety Report 9986212 (Version 1)
Quarter: 2014Q1

REPORT INFORMATION
  Report Type: Report from Study
  Country: US (occurrence: US)
  Receive Date: 20140307
  Receipt Date: 20140307
  Transmission Date: 20141002
  Serious: No
  Sender: FDA-Public Use
  Company Number: US-ABBVIE-13P-163-1088170-00

PATIENT
  Age: 31 Year
  Sex: Female

DRUGS (7)
  1. HUMIRA [Suspect]
     Indication: CROHN^S DISEASE
     Dates: start: 20130417, end: 20130417
  2. HUMIRA [Suspect]
     Dates: start: 20130501
  3. VICODIN [Concomitant]
     Indication: ARTHRALGIA
  4. ZOFRAN [Concomitant]
     Indication: NAUSEA
     Dosage: ANYWHERE FROM 0 TO 4 TABLETS DAILY, AS NEEDED
  5. ZOFRAN [Concomitant]
     Indication: CROHN^S DISEASE
  6. SYNTHROID [Concomitant]
     Indication: HYPOTHYROIDISM
  7. SYNTHROID [Concomitant]
     Indication: INSOMNIA
     Dosage: AT BEDTIME, USUALLY ABOUT 3 TIMES PER WEEK

REACTIONS (4)
  - Blister [Not Recovered/Not Resolved]
  - Rash [Not Recovered/Not Resolved]
  - Rash pruritic [Not Recovered/Not Resolved]
  - Rash macular [Not Recovered/Not Resolved]
